FAERS Safety Report 6094229-7 (Version None)
Quarter: 2009Q1

REPORT INFORMATION
  Report Type: 
  Country: None (occurrence: None)
  Receive Date: 20090226
  Receipt Date: 20090212
  Transmission Date: 20090719
  Serious: Yes (Hospitalization)
  Sender: FDA-Public Use
  Company Number: BE-GENENTECH-277835

PATIENT
  Sex: Male

DRUGS (3)
  1. MABTHERA [Suspect]
     Dosage: 1000 MG, UNK
     Route: 042
     Dates: start: 20081106, end: 20081106
  2. METHYLPREDNISOLONE [Concomitant]
     Indication: PREMEDICATION
     Dosage: UNK
     Dates: start: 20081106
  3. PERFUSALGAN [Concomitant]
     Indication: PREMEDICATION
     Dosage: UNK
     Dates: start: 20081106

REACTIONS (1)
  - CEREBROVASCULAR ACCIDENT [None]
